FAERS Safety Report 8162846-6 (Version None)
Quarter: 2012Q1

REPORT INFORMATION
  Report Type: 
  Country: None (occurrence: None)
  Receive Date: 20120224
  Receipt Date: 20120214
  Transmission Date: 20120608
  Serious: Yes (Hospitalization)
  Sender: FDA-Public Use
  Company Number: BR-AMGEN-BRASP2012010645

PATIENT
  Age: 59 Year
  Sex: Female
  Weight: 68 kg

DRUGS (8)
  1. OMEPRAZOLE [Concomitant]
     Dosage: UNK
  2. CALCIUM [Concomitant]
     Dosage: UNK
  3. PREDNISONE [Concomitant]
     Dosage: UNK
  4. ENBREL [Suspect]
     Dosage: 50 MG, ONCE WEEKLY, PRE-FILLED PEN
     Route: 058
     Dates: start: 20111201, end: 20111227
  5. METHOTREXATE [Concomitant]
     Dosage: ONE INJECTION ONCE WEEKLY (EVERY MONDAY)
  6. ENBREL [Suspect]
     Indication: RHEUMATOID ARTHRITIS
     Dosage: POWDER AND SOLVENT FOR SOLUTION FOR INJECTION
     Route: 058
     Dates: start: 20100101
  7. VITAMIN D [Concomitant]
     Dosage: UNK
  8. FOLIC ACID [Concomitant]
     Dosage: UNK

REACTIONS (13)
  - PAIN [None]
  - INJECTION SITE MASS [None]
  - DIARRHOEA [None]
  - HEADACHE [None]
  - URINARY TRACT INFECTION [None]
  - SKIN INJURY [None]
  - MICTURITION FREQUENCY DECREASED [None]
  - JOINT SWELLING [None]
  - PYREXIA [None]
  - GAIT DISTURBANCE [None]
  - MOVEMENT DISORDER [None]
  - OSTEOPOROSIS [None]
  - FALL [None]
